FAERS Safety Report 5935669-3 (Version None)
Quarter: 2008Q4

REPORT INFORMATION
  Report Type: 
  Country: None (occurrence: None)
  Receive Date: 20081028
  Receipt Date: 20081017
  Transmission Date: 20090506
  Serious: Yes (Other)
  Sender: FDA-Public Use
  Company Number: 2008AP002362

PATIENT
  Age: 78 Year
  Sex: Male

DRUGS (4)
  1. ZOLPIDEM TARTRATE [Suspect]
     Dosage: 5 MG; QD; PO
     Route: 048
     Dates: start: 20080909, end: 20080909
  2. ZOLPIDEM TARTRATE [Concomitant]
  3. AMLODIPINE BESYLATE [Concomitant]
  4. OMEPRAZOLE [Concomitant]

REACTIONS (7)
  - BALANCE DISORDER [None]
  - COGNITIVE DISORDER [None]
  - CONFUSIONAL STATE [None]
  - DIZZINESS [None]
  - FEELING ABNORMAL [None]
  - GAIT DISTURBANCE [None]
  - MENTAL IMPAIRMENT [None]
